FAERS Safety Report 9956665 (Version 1)
Quarter: 2014Q1

REPORT INFORMATION
  Report Type: Report from Study
  Country: US (occurrence: US)
  Receive Date: 20140304
  Receipt Date: 20140304
  Transmission Date: 20141002
  Serious: No
  Sender: FDA-Public Use
  Company Number: US-ABBVIE-13P-163-1092937-00

PATIENT
  Age: 32 Year
  Sex: Female

DRUGS (7)
  1. HUMIRA [Suspect]
     Indication: RHEUMATOID ARTHRITIS
     Dosage: INITIAL DOSE
     Dates: start: 20130514
  2. NEUROTIN [Concomitant]
     Indication: PAIN
  3. VOLTAREN [Concomitant]
     Indication: PAIN
     Dosage: AS NEEDED
  4. TRAMADOL [Concomitant]
     Indication: PAIN
     Dosage: AS NEEDED
  5. NORCO [Concomitant]
     Indication: PAIN
     Dosage: 10/325 MG AS NEEDED
  6. CHANTIX [Concomitant]
     Indication: EX-TOBACCO USER
  7. SYNTHYROID [Concomitant]
     Indication: HYPOTHYROIDISM
     Dosage: 25 MCG DAILY

REACTIONS (3)
  - Mouth ulceration [Not Recovered/Not Resolved]
  - Oropharyngeal pain [Not Recovered/Not Resolved]
  - Hypersensitivity [Not Recovered/Not Resolved]
